FAERS Safety Report 21366636 (Version 2)
Quarter: 2023Q2

REPORT INFORMATION
  Report Type: Other
  Country: US (occurrence: None)
  Receive Date: 20220923
  Receipt Date: 20230607
  Transmission Date: 20230721
  Serious: Yes (Hospitalization, Other)
  Sender: FDA-Public Use
  Company Number: US-ROCHE-3181361

PATIENT
  Age: 56 Year
  Sex: Female
  Weight: 57.658 kg

DRUGS (3)
  1. OCREVUS [Suspect]
     Active Substance: OCRELIZUMAB
     Indication: Relapsing-remitting multiple sclerosis
     Dosage: SUBSEQUENTLY 600MG FOR EVERY 6 MONTHS; YES; DOT: //2019, 28/FEB/2022, 25/AUG/2021, 25/FEB/2021, 28/J
     Route: 042
     Dates: start: 20180725
  2. OCREVUS [Suspect]
     Active Substance: OCRELIZUMAB
     Indication: Multiple sclerosis
  3. ZOFRAN [Concomitant]
     Active Substance: ONDANSETRON HYDROCHLORIDE
     Route: 065

REACTIONS (11)
  - COVID-19 [Recovered/Resolved]
  - Renal disorder [Recovering/Resolving]
  - Pneumonia [Unknown]
  - Sepsis [Unknown]
  - Dysphagia [Recovered/Resolved]
  - Diabetes mellitus [Unknown]
  - Areflexia [Recovered/Resolved]
  - Pneumothorax [Not Recovered/Not Resolved]
  - Dizziness [Not Recovered/Not Resolved]
  - Fall [Unknown]
  - Head injury [Recovered/Resolved]

NARRATIVE: CASE EVENT DATE: 20210901
